FAERS Safety Report 16983866 (Version 1)
Quarter: 2019Q4

REPORT INFORMATION
  Report Type: Spontaneous
  Country: US (occurrence: US)
  Receive Date: 20191030
  Receipt Date: 20191030
  Transmission Date: 20200122
  Serious: Yes (Life-Threatening, Disabling, Other)
  Sender: FDA-Public Use
  Company Number: None

PATIENT
  Age: 24 Year
  Sex: Female
  Weight: 53.55 kg

DRUGS (4)
  1. FOLATE [Concomitant]
     Active Substance: FOLATE SODIUM
  2. ADDERALL [Concomitant]
     Active Substance: AMPHETAMINE ASPARTATE\AMPHETAMINE SULFATE\DEXTROAMPHETAMINE SACCHARATE\DEXTROAMPHETAMINE SULFATE
  3. VITAMIN B12 [Concomitant]
     Active Substance: CYANOCOBALAMIN
  4. BUSPAR [Suspect]
     Active Substance: BUSPIRONE HYDROCHLORIDE
     Indication: GENERALISED ANXIETY DISORDER
     Dosage: ?          QUANTITY:1 TABLET(S);?
     Route: 048
     Dates: start: 20190813, end: 20190902

REACTIONS (8)
  - Somnolence [None]
  - Mobility decreased [None]
  - Suicidal ideation [None]
  - Impaired work ability [None]
  - Fatigue [None]
  - Abnormal behaviour [None]
  - Asthenia [None]
  - Anxiety [None]

NARRATIVE: CASE EVENT DATE: 20190902
